FAERS Safety Report 14034703 (Version 1)
Quarter: 2017Q4

REPORT INFORMATION
  Report Type: Spontaneous
  Country: ES (occurrence: ES)
  Receive Date: 20171003
  Receipt Date: 20171003
  Transmission Date: 20180321
  Serious: Yes (Death, Hospitalization)
  Sender: FDA-Public Use
  Company Number: ES-009507513-1709ESP012348

PATIENT
  Age: 60 Year
  Sex: Male

DRUGS (1)
  1. KEYTRUDA [Suspect]
     Active Substance: PEMBROLIZUMAB
     Indication: MALIGNANT MELANOMA
     Dosage: 2 MICROGRAM PER KILOGRAM(ALSO REPORTED AS 2MG/KG), UNK
     Route: 042
     Dates: start: 20141114

REACTIONS (1)
  - Autoimmune hepatitis [Fatal]

NARRATIVE: CASE EVENT DATE: 20150115
